FAERS Safety Report 7674974-X (Version None)
Quarter: 2011Q3

REPORT INFORMATION
  Report Type: 
  Country: None (occurrence: None)
  Receive Date: 20110810
  Receipt Date: 20110728
  Transmission Date: 20111222
  Serious: No
  Sender: FDA-Public Use
  Company Number: JP-JNJFOC-20110800638

PATIENT
  Age: 6 Decade
  Sex: Female

DRUGS (5)
  1. OTHER THERAPEUTIC PRODUCT [Concomitant]
     Indication: PRODUCT USED FOR UNKNOWN INDICATION
     Dosage: 4 TIMES PER DAY OR MORE BY NECESSITY
     Route: 065
  2. FENTANYL CITRATE [Suspect]
     Route: 062
  3. FENTANYL CITRATE [Suspect]
     Indication: CANCER PAIN
     Route: 062
  4. FENTANYL CITRATE [Suspect]
     Route: 062
  5. ANTI-CANCER DRUG [Concomitant]
     Indication: BREAST CANCER RECURRENT
     Route: 065

REACTIONS (2)
  - SOMNOLENCE [None]
  - INAPPROPRIATE SCHEDULE OF DRUG ADMINISTRATION [None]
